FAERS Safety Report 9031695 (Version 2)
Quarter: 2013Q1

REPORT INFORMATION
  Report Type: Spontaneous
  Country: TR (occurrence: TR)
  Receive Date: 20130116
  Receipt Date: 20130116
  Transmission Date: 20140127
  Serious: Yes (Death, Other)
  Sender: FDA-Public Use
  Company Number: TR-PFIZER INC-2013011142

PATIENT
  Age: 80 Year
  Sex: Male

DRUGS (8)
  1. AMIODARONE HCL [Suspect]
     Indication: VENTRICULAR TACHYCARDIA
     Dosage: 300MG, UNK
     Route: 040
  2. AMIODARONE HCL [Suspect]
     Indication: ANGIOPATHY
  3. AMIODARONE HCL [Suspect]
     Indication: VENTRICULAR TACHYCARDIA
     Dosage: 900 MG/DAY
  4. AMIODARONE HCL [Suspect]
     Indication: ANGIOPATHY
     Dosage: 400 MG/DAY
  5. CLOPIDOGREL SULFATE [Concomitant]
     Indication: CORONARY ARTERY DISEASE
     Dosage: 75 MG, UNK
  6. SPIRONOLACTONE [Concomitant]
     Indication: CORONARY ARTERY DISEASE
     Dosage: 100 MG, UNK
  7. ACETYLSALICYLIC ACID [Concomitant]
     Indication: CORONARY ARTERY DISEASE
     Dosage: 300 MG, UNK
  8. AMLODIPINE BESILATE [Concomitant]
     Indication: CORONARY ARTERY DISEASE
     Dosage: 5 MG, UNK

REACTIONS (1)
  - Hepatic failure [Fatal]
